FAERS Safety Report 9287138 (Version 1)
Quarter: 2013Q2

REPORT INFORMATION
  Report Type: Spontaneous
  Country: NL (occurrence: NL)
  Receive Date: 20130513
  Receipt Date: 20130513
  Transmission Date: 20140414
  Serious: Yes (Other)
  Sender: FDA-Public Use
  Company Number: NL-009507513-1305NLD004451

PATIENT
  Age: 66 Year
  Sex: Male

DRUGS (7)
  1. REMERON [Suspect]
     Dosage: 15 MG, QD
     Route: 048
     Dates: start: 20130410
  2. DEPAKINE CHRONO [Interacting]
     Indication: EPILEPSY
     Dosage: 750 MG, BID
     Route: 048
     Dates: start: 20100705
  3. ASASANTIN RETARD [Concomitant]
     Dosage: 1 DF, BID
     Dates: start: 20100910
  4. ATENOLOL [Concomitant]
     Dosage: 100 MG, QD
     Dates: start: 20080924
  5. INDAPAMIDE (+) PERINDOPRIL [Concomitant]
     Dosage: 1 DF, QD
     Dates: start: 20101112
  6. OMEPRAZOLE [Concomitant]
     Dosage: 20 MG, QD
     Dates: start: 20120917
  7. CRESTOR [Concomitant]
     Dosage: 10 MG, QD
     Dates: start: 20060721

REACTIONS (1)
  - Epilepsy [Recovered/Resolved]
